FAERS Safety Report 5173910-8 (Version None)
Quarter: 2006Q4

REPORT INFORMATION
  Report Type: 
  Country: None (occurrence: None)
  Receive Date: 20061214
  Receipt Date: 20060822
  Transmission Date: 20070319
  Serious: Yes (Hospitalization)
  Sender: FDA-Public Use
  Company Number: US-NOVOPROD-256283

PATIENT
  Sex: Female
  Weight: 131.7 kg

DRUGS (6)
  1. INSULIN DETEMIR FLEXPEN [Suspect]
     Indication: INSULIN-REQUIRING TYPE II DIABETES MELLITUS
     Dosage: 44 U, BID
     Route: 058
     Dates: start: 20060317
  2. AVANDIA [Concomitant]
     Indication: DIABETES MELLITUS
     Dosage: 4 MG, QD
     Route: 048
     Dates: start: 20050429
  3. ALTACE [Concomitant]
     Indication: HYPERTENSION
     Dosage: 10 MG, QD
     Route: 048
     Dates: start: 20050429
  4. CRESTOR [Concomitant]
     Indication: HYPERLIPIDAEMIA
     Dosage: 10 MG, QD
     Route: 048
     Dates: start: 20050727
  5. NIASPAN [Concomitant]
     Indication: HYPERLIPIDAEMIA
     Dosage: 1 G, QD
     Route: 048
     Dates: start: 20050727
  6. OMNICEF [Concomitant]
     Dosage: 300 MG, BID

REACTIONS (7)
  - CELLULITIS [None]
  - INJECTION SITE CELLULITIS [None]
  - PANNICULITIS [None]
  - POOR PERSONAL HYGIENE [None]
  - STAPHYLOCOCCAL INFECTION [None]
  - VENOUS STASIS [None]
  - WRONG TECHNIQUE IN DRUG USAGE PROCESS [None]
